FAERS Safety Report 19440508 (Version 1)
Quarter: 2021Q2

REPORT INFORMATION
  Report Type: Spontaneous
  Country: US (occurrence: US)
  Receive Date: 20210621
  Receipt Date: 20210621
  Transmission Date: 20210717
  Serious: No
  Sender: FDA-Public Use
  Company Number: US-STRIDES ARCOLAB LIMITED-2020SP016307

PATIENT
  Age: 59 Year
  Sex: Female

DRUGS (9)
  1. TIMOLOL. [Concomitant]
     Active Substance: TIMOLOL
     Indication: POSTOPERATIVE CARE
     Dosage: UNK
     Route: 047
  2. LOTEMAX [Concomitant]
     Active Substance: LOTEPREDNOL ETABONATE
     Indication: POSTOPERATIVE CARE
     Dosage: UNK
     Route: 047
  3. FLUOROMETHOLONE. [Concomitant]
     Active Substance: FLUOROMETHOLONE
     Indication: POSTOPERATIVE CARE
     Dosage: UNK
     Route: 047
  4. REFRESH PLUS [Concomitant]
     Active Substance: CARBOXYMETHYLCELLULOSE SODIUM
     Indication: POSTOPERATIVE CARE
     Dosage: UNK
     Route: 047
  5. HYDROCORTISONE. [Suspect]
     Active Substance: HYDROCORTISONE
     Indication: RASH
     Dosage: UNK
     Route: 061
  6. MOXIFLOXACIN. [Concomitant]
     Active Substance: MOXIFLOXACIN
     Indication: POSTOPERATIVE CARE
     Dosage: UNK
     Route: 047
  7. LATANOPROST. [Concomitant]
     Active Substance: LATANOPROST
     Indication: POSTOPERATIVE CARE
     Dosage: UNK
     Route: 047
  8. REFRESH OPTIVE [Concomitant]
     Active Substance: CARBOXYMETHYLCELLULOSE SODIUM\GLYCERIN
     Indication: POSTOPERATIVE CARE
     Dosage: UNK
     Route: 047
  9. CIPROFLOXACIN. [Concomitant]
     Active Substance: CIPROFLOXACIN
     Indication: POSTOPERATIVE CARE
     Dosage: UNK
     Route: 047

REACTIONS (1)
  - Rash [Unknown]
